FAERS Safety Report 9788917 (Version 1)
Quarter: 2013Q4

REPORT INFORMATION
  Report Type: Spontaneous
  Country: CN (occurrence: CN)
  Receive Date: 20131230
  Receipt Date: 20131230
  Transmission Date: 20140711
  Serious: Yes (Other)
  Sender: FDA-Public Use
  Company Number: CN-GLAXOSMITHKLINE-B0956040A

PATIENT
  Sex: Male

DRUGS (1)
  1. HEPTODIN [Suspect]
     Indication: HEPATITIS B
     Route: 048

REACTIONS (3)
  - Bile duct stone [Unknown]
  - Drug ineffective [Unknown]
  - Product quality issue [Unknown]
